FAERS Safety Report 7890905-1 (Version None)
Quarter: 2011Q4

REPORT INFORMATION
  Report Type: 
  Country: None (occurrence: None)
  Receive Date: 20111103
  Receipt Date: 20110727
  Transmission Date: 20120403
  Serious: No
  Sender: FDA-Public Use
  Company Number: US-AMGEN-USASP2011038136

PATIENT
  Age: 71 Year
  Sex: Female

DRUGS (10)
  1. MOBIC [Concomitant]
     Dosage: 7.5 MG, UNK
  2. FORTEO [Concomitant]
     Dosage: 750 MEQ/ML, UNK
  3. WARFARIN SODIUM [Concomitant]
     Dosage: 1 MG, UNK
  4. MULTI-VITAMIN [Concomitant]
  5. PLAQUENIL [Concomitant]
     Dosage: 200 MG, UNK
  6. VITAMIN D [Concomitant]
     Dosage: 400 IU, UNK
  7. ASPIRIN [Concomitant]
     Dosage: 81 MG, UNK
  8. ENBREL [Suspect]
     Indication: PRODUCT USED FOR UNKNOWN INDICATION
     Dosage: 50 MG, QWK
     Route: 058
  9. NORVASC [Concomitant]
     Dosage: 2.5 MG, UNK
  10. PRILOSEC [Concomitant]
     Dosage: 10 MG, UNK

REACTIONS (1)
  - OROPHARYNGEAL PAIN [None]
